FAERS Safety Report 5220974-9 (Version None)
Quarter: 2007Q1

REPORT INFORMATION
  Report Type: 
  Country: None (occurrence: None)
  Receive Date: 20070126
  Receipt Date: 20070119
  Transmission Date: 20070707
  Serious: No
  Sender: FDA-Public Use
  Company Number: JP-AVENTIS-200613509JP

PATIENT
  Age: 83 Year
  Sex: Female
  Weight: 40 kg

DRUGS (10)
  1. LASIX [Suspect]
     Indication: CARDIAC FAILURE CHRONIC
     Route: 048
     Dates: start: 20060223
  2. LASIX [Suspect]
     Indication: CEREBRAL INFARCTION
     Dates: start: 20060801, end: 20060829
  3. DIART [Suspect]
     Indication: CARDIAC FAILURE
     Route: 048
     Dates: start: 20060206
  4. PIROLACTON [Suspect]
     Indication: CARDIAC FAILURE
     Route: 048
     Dates: start: 20040709
  5. WARFARIN SODIUM [Concomitant]
     Indication: ATRIAL FIBRILLATION
     Route: 048
     Dates: start: 20060721
  6. GASTER [Concomitant]
     Indication: GASTRIC ULCER
     Route: 048
     Dates: start: 20060128
  7. DIGOXIN [Concomitant]
     Indication: CARDIAC FAILURE
     Route: 048
     Dates: start: 20040709
  8. THYRADIN [Concomitant]
     Indication: HYPOTHYROIDISM
     Route: 048
     Dates: start: 20060428
  9. SLOW-K [Concomitant]
     Indication: HYPOKALAEMIA
     Route: 048
     Dates: start: 20060206
  10. MAGNESIUM OXIDE [Concomitant]
     Indication: CONSTIPATION
     Route: 048
     Dates: start: 20060206

REACTIONS (1)
  - RENAL IMPAIRMENT [None]
